FAERS Safety Report 4349734-8 (Version None)
Quarter: 2004Q2

REPORT INFORMATION
  Report Type: 
  Country: None (occurrence: None)
  Receive Date: 20040428
  Receipt Date: 20040413
  Transmission Date: 20050107
  Serious: No
  Sender: FDA-Public Use
  Company Number: 02100-JPN-04-0109

PATIENT
  Age: 79 Year
  Sex: Male

DRUGS (4)
  1. CILOSTAZOL [Suspect]
     Indication: CEREBRAL INFARCTION
     Dosage: 100 MG
     Route: 048
     Dates: start: 20040201
  2. LOSARTAN POTASSIUM [Suspect]
     Dosage: 50 MG
     Route: 048
     Dates: start: 20030401
  3. FAMOTIDINE [Suspect]
     Dosage: 40 MG
     Route: 048
     Dates: start: 20031101
  4. FLUNITRAZEPAM [Concomitant]

REACTIONS (1)
  - WHITE BLOOD CELL COUNT DECREASED [None]
